FAERS Safety Report 9264788 (Version 1)
Quarter: 2013Q2

REPORT INFORMATION
  Report Type: Spontaneous
  Country: US (occurrence: None)
  Receive Date: 20130429
  Receipt Date: 20130429
  Transmission Date: 20140414
  Serious: Yes (Other)
  Sender: FDA-Public Use
  Company Number: None

PATIENT
  Age: 52 Year
  Sex: Female
  Weight: 83.46 kg

DRUGS (1)
  1. CIPROFLOXACIN HCL [Suspect]
     Indication: URINARY TRACT INFECTION
     Dosage: 1 TABLET TWICE A DAY PO
     Route: 048
     Dates: start: 20130414, end: 20130424

REACTIONS (7)
  - Arthralgia [None]
  - Gait disturbance [None]
  - Pain in extremity [None]
  - Arthralgia [None]
  - Back pain [None]
  - Abasia [None]
  - Pain in extremity [None]
